FAERS Safety Report 8350430-0 (Version None)
Quarter: 2012Q2

REPORT INFORMATION
  Report Type: 
  Country: None (occurrence: None)
  Receive Date: 20120510
  Receipt Date: 20120502
  Transmission Date: 20120825
  Serious: Yes (Other)
  Sender: FDA-Public Use
  Company Number: KR-B.I. PHARMACEUTICALS,INC./RIDGEFIELD-2012-BP-09826YA

PATIENT
  Age: 73 Year
  Sex: Male

DRUGS (8)
  1. ASPIRIN [Concomitant]
     Dates: start: 20050101
  2. TAMSULOSIN HCL [Suspect]
     Indication: BENIGN PROSTATIC HYPERPLASIA
     Dosage: 0.2 MG
     Route: 048
     Dates: start: 20120424, end: 20120424
  3. MOLSIDOMINE (MOLSIDOMINE) [Concomitant]
     Dates: start: 20050101
  4. PITAVASTATIN CALCIUM (ITAVASTATIN CALCIUM) [Concomitant]
     Dates: start: 20050101
  5. BUSPIRONE HCL (BUSPIRONE HYDROCHLORIDE) [Concomitant]
     Dates: start: 20050101
  6. VESICARE [Suspect]
     Route: 048
  7. CARVEDILOL [Concomitant]
     Route: 048
     Dates: start: 20050101
  8. ETIZOLAM (ETIZOLAM) [Concomitant]
     Dates: start: 20050101

REACTIONS (1)
  - CHEST DISCOMFORT [None]
